FAERS Safety Report 12104139 (Version 9)
Quarter: 2016Q2

REPORT INFORMATION
  Report Type: Report from Study
  Country: US (occurrence: US)
  Receive Date: 20160223
  Receipt Date: 20160519
  Transmission Date: 20160815
  Serious: Yes (Hospitalization)
  Sender: FDA-Public Use
  Company Number: US-ROCHE-1709035

PATIENT
  Age: 52 Year
  Sex: Female
  Weight: 48.8 kg

DRUGS (18)
  1. DESMOPRESSIN ACETATE. [Concomitant]
     Active Substance: DESMOPRESSIN ACETATE
     Route: 065
     Dates: start: 20140301
  2. PROMETRIUM (UNITED STATES) [Concomitant]
     Route: 065
     Dates: start: 201404
  3. VEMURAFENIB [Suspect]
     Active Substance: VEMURAFENIB
     Indication: NEOPLASM MALIGNANT
     Dosage: DATE OF LAST DOSE PRIOR TO SAE 15/JUL/2014
     Route: 048
     Dates: start: 20140707
  4. NIACIN. [Concomitant]
     Active Substance: NIACIN
     Route: 065
     Dates: start: 20140721
  5. BENZONATATE. [Concomitant]
     Active Substance: BENZONATATE
     Route: 065
     Dates: start: 20150824
  6. AMLODIPINE BESYLATE. [Concomitant]
     Active Substance: AMLODIPINE BESYLATE
     Route: 065
     Dates: start: 2009
  7. PANTOPRAZOLE [Concomitant]
     Active Substance: PANTOPRAZOLE SODIUM
     Route: 065
     Dates: start: 20150820
  8. VEMURAFENIB [Suspect]
     Active Substance: VEMURAFENIB
     Dosage: DATE OF LAST DOSE PRIOR TO LUNG INFECTION: 14/JAN/2016?PERMANENTLY DISCONTINUED ON 14/JAN/2016
     Route: 048
     Dates: start: 20151218, end: 20160114
  9. VEMURAFENIB [Suspect]
     Active Substance: VEMURAFENIB
     Dosage: DATE OF LAST DOSE PRIOR TO SAE 10/NOV/2015
     Route: 048
     Dates: start: 20140721
  10. ALBUTEROL. [Concomitant]
     Active Substance: ALBUTEROL
     Route: 065
     Dates: end: 2009
  11. SPIRIVA [Concomitant]
     Active Substance: TIOTROPIUM BROMIDE MONOHYDRATE
     Route: 065
     Dates: start: 201404
  12. ALLEGRA [Concomitant]
     Active Substance: FEXOFENADINE HYDROCHLORIDE
     Route: 065
     Dates: start: 201404
  13. LOVAZA [Concomitant]
     Active Substance: OMEGA-3-ACID ETHYL ESTERS
     Route: 065
     Dates: start: 2009
  14. XYLITOL [Concomitant]
     Active Substance: XYLITOL
     Dosage: 2 UNIT
     Route: 065
     Dates: start: 20150817
  15. KINERET [Concomitant]
     Active Substance: ANAKINRA
     Route: 065
     Dates: start: 2010
  16. VITAMIN D3 [Concomitant]
     Active Substance: CHOLECALCIFEROL
     Route: 065
     Dates: start: 201012
  17. VIVELLE-DOT [Concomitant]
     Active Substance: ESTRADIOL
     Route: 065
     Dates: start: 201404
  18. SYNTHROID [Concomitant]
     Active Substance: LEVOTHYROXINE SODIUM
     Route: 065
     Dates: start: 20141120

REACTIONS (2)
  - Bacteraemia [Recovered/Resolved]
  - Lung infection [Recovered/Resolved]

NARRATIVE: CASE EVENT DATE: 20160115
